FAERS Safety Report 22638921 (Version 1)
Quarter: 2023Q2

REPORT INFORMATION
  Report Type: Spontaneous
  Country: US (occurrence: None)
  Receive Date: 20230626
  Receipt Date: 20230626
  Transmission Date: 20230722
  Serious: No
  Sender: FDA-Public Use
  Company Number: 2023A143228

PATIENT
  Sex: Female

DRUGS (1)
  1. FASENRA [Suspect]
     Active Substance: BENRALIZUMAB
     Route: 058

REACTIONS (5)
  - Chills [Unknown]
  - Influenza like illness [Unknown]
  - Micturition disorder [Unknown]
  - Abdominal distension [Unknown]
  - Micturition frequency decreased [Unknown]
